FAERS Safety Report 23454177 (Version 4)
Quarter: 2024Q1

REPORT INFORMATION
  Report Type: Spontaneous
  Country: JP (occurrence: JP)
  Receive Date: 20240130
  Receipt Date: 20240319
  Transmission Date: 20240410
  Serious: Yes (Hospitalization)
  Sender: FDA-Public Use
  Company Number: JP-JNJFOC-20230670542

PATIENT
  Age: 59 Year
  Sex: Female

DRUGS (5)
  1. INVEGA [Suspect]
     Active Substance: PALIPERIDONE
     Indication: Psychotic disorder
     Dosage: DOSE UNKNOWN
     Route: 048
     Dates: start: 202301, end: 202309
  2. INVEGA [Suspect]
     Active Substance: PALIPERIDONE
     Indication: Psychotic disorder
     Dosage: IN THE MORNING
     Route: 048
     Dates: start: 2023, end: 20240308
  3. RISPERDAL [Suspect]
     Active Substance: RISPERIDONE
     Indication: Psychotic disorder
     Dosage: IN THE MORNING AND AFTERNOON
     Route: 048
     Dates: start: 20240309
  4. RISPERIDONE [Suspect]
     Active Substance: RISPERIDONE
     Indication: Psychotic disorder
     Route: 048
  5. RISPERIDONE [Suspect]
     Active Substance: RISPERIDONE
     Dosage: IN THE EVENING
     Route: 048

REACTIONS (10)
  - Atrial fibrillation [Unknown]
  - Affect lability [Unknown]
  - Gait disturbance [Unknown]
  - Malaise [Unknown]
  - Insomnia [Unknown]
  - Irritability [Unknown]
  - Mood altered [Unknown]
  - Pollakiuria [Unknown]
  - Constipation [Unknown]
  - Weight increased [Unknown]
